FAERS Safety Report 19935543 (Version 3)
Quarter: 2021Q4

REPORT INFORMATION
  Report Type: Report from Study
  Country: US (occurrence: US)
  Receive Date: 20211008
  Receipt Date: 20211222
  Transmission Date: 20220303
  Serious: Yes (Death, Other)
  Sender: FDA-Public Use
  Company Number: US-BAYER-2021A224369

PATIENT
  Age: 70 Year
  Sex: Male

DRUGS (9)
  1. REGORAFENIB [Suspect]
     Active Substance: REGORAFENIB
     Indication: Colorectal cancer metastatic
     Dosage: 80 MG, QD
     Route: 048
     Dates: start: 20210901
  2. REGORAFENIB [Suspect]
     Active Substance: REGORAFENIB
     Indication: Metastases to liver
     Dosage: 120 MG, QD
     Route: 048
  3. REGORAFENIB [Suspect]
     Active Substance: REGORAFENIB
     Indication: Metastases to lung
     Dosage: 160 MG, QD
     Route: 048
  4. SENNA [SENNA ALEXANDRINA LEAF] [Concomitant]
  5. MIRALAX [Concomitant]
     Active Substance: POLYETHYLENE GLYCOL 3350
  6. DILAUDID [Concomitant]
     Active Substance: HYDROMORPHONE HYDROCHLORIDE
     Dosage: 4 MG
  7. DILAUDID [Concomitant]
     Active Substance: HYDROMORPHONE HYDROCHLORIDE
     Dosage: 2-4 MG
  8. METOPROLOL SUCCINATE [Concomitant]
     Active Substance: METOPROLOL SUCCINATE
  9. ROSUVASTATIN [Concomitant]
     Active Substance: ROSUVASTATIN

REACTIONS (2)
  - Colorectal cancer metastatic [Fatal]
  - Biliary obstruction [Not Recovered/Not Resolved]

NARRATIVE: CASE EVENT DATE: 20210929
